FAERS Safety Report 11575036 (Version 1)
Quarter: 2015Q3

REPORT INFORMATION
  Report Type: Spontaneous
  Country: US (occurrence: None)
  Receive Date: 20150929
  Receipt Date: 20150929
  Transmission Date: 20151125
  Serious: Yes (Other)
  Sender: FDA-Public Use
  Company Number: None

PATIENT
  Age: 71 Year
  Sex: Female
  Weight: 56.7 kg

DRUGS (4)
  1. LEVOTHYROXINE. [Concomitant]
     Active Substance: LEVOTHYROXINE
  2. RIZATRIPTAN 10MG ODT MYLAN [Suspect]
     Active Substance: RIZATRIPTAN
     Indication: PRODUCT USED FOR UNKNOWN INDICATION
     Route: 048
     Dates: start: 20150925, end: 20150925
  3. IBUPROFEN. [Concomitant]
     Active Substance: IBUPROFEN
  4. ZETIA [Concomitant]
     Active Substance: EZETIMIBE

REACTIONS (6)
  - Vomiting [None]
  - Headache [None]
  - Nausea [None]
  - No therapeutic response [None]
  - Retching [None]
  - Weight increased [None]

NARRATIVE: CASE EVENT DATE: 20150925
